FAERS Safety Report 4491134-4 (Version None)
Quarter: 2004Q3

REPORT INFORMATION
  Report Type: 
  Country: None (occurrence: None)
  Receive Date: 20040927
  Receipt Date: 20040729
  Transmission Date: 20050211
  Serious: No
  Sender: FDA-Public Use
  Company Number: USA040774065

PATIENT
  Age: 37 Year
  Sex: Female
  Weight: 68 kg

DRUGS (2)
  1. ZYPREXA [Suspect]
     Indication: PSYCHOTIC DISORDER
  2. STRATTERA [Suspect]
     Indication: ATTENTION DEFICIT/HYPERACTIVITY DISORDER
     Dosage: 40 MG/2 DAY
     Dates: start: 20040601

REACTIONS (11)
  - AMENORRHOEA [None]
  - BLOOD PROLACTIN INCREASED [None]
  - CRYING [None]
  - DRUG INEFFECTIVE [None]
  - EMOTIONAL DISORDER [None]
  - HYPOTONIA [None]
  - MENSTRUATION IRREGULAR [None]
  - MOOD SWINGS [None]
  - MUSCLE TWITCHING [None]
  - NEGATIVISM [None]
  - PSYCHOMOTOR HYPERACTIVITY [None]
